FAERS Safety Report 11193801 (Version 1)
Quarter: 2015Q2

REPORT INFORMATION
  Report Type: Spontaneous
  Country: NZ (occurrence: NZ)
  Receive Date: 20150616
  Receipt Date: 20150616
  Transmission Date: 20150821
  Serious: Yes (Hospitalization, Other)
  Sender: FDA-Public Use
  Company Number: NZ-GLAXOSMITHKLINE INC.-NZ2015GSK080961

PATIENT
  Age: 44 Year
  Sex: Female

DRUGS (4)
  1. NOREPINEPHRINE [Concomitant]
     Active Substance: NOREPINEPHRINE\NOREPINEPHRINE BITARTRATE
     Indication: PRODUCT USED FOR UNKNOWN INDICATION
     Dosage: UNK
     Route: 005
  2. SALBUTAMOL [Suspect]
     Active Substance: ALBUTEROL
     Indication: ASTHMA
     Dosage: 5 MG, UNK BOLUS
     Route: 042
  3. DEXAMETHASONE. [Suspect]
     Active Substance: DEXAMETHASONE
     Indication: ASTHMA
     Dosage: UNK BOLUS
     Route: 042
  4. SALBUTAMOL [Suspect]
     Active Substance: ALBUTEROL
     Dosage: 0.2 ?G/KG/MIN, UNK
     Route: 042

REACTIONS (11)
  - Respiration abnormal [Recovering/Resolving]
  - Dyspnoea [Recovering/Resolving]
  - Myocardial depression [Unknown]
  - Oxygen saturation decreased [Recovering/Resolving]
  - Tachycardia [Recovering/Resolving]
  - Vasodilatation [Recovering/Resolving]
  - Toxicity to various agents [Unknown]
  - Pulmonary oedema [Recovered/Resolved]
  - Lactic acidosis [Recovering/Resolving]
  - Mitral valve stenosis [Not Recovered/Not Resolved]
  - Mitral valve disease mixed [Not Recovered/Not Resolved]
